FAERS Safety Report 5692960-6 (Version None)
Quarter: 2008Q2

REPORT INFORMATION
  Report Type: 
  Country: None (occurrence: None)
  Receive Date: 20080402
  Receipt Date: 20080402
  Transmission Date: 20081010
  Serious: Yes (Life-Threatening, Other)
  Sender: FDA-Public Use
  Company Number: None

PATIENT
  Age: 44 Year
  Sex: Male
  Weight: 107.9561 kg

DRUGS (1)
  1. KEFLEX [Suspect]
     Indication: PHARYNGOLARYNGEAL PAIN
     Dosage: 500 MG 4X A DAY
     Dates: start: 20071111, end: 20071114

REACTIONS (2)
  - CONFUSIONAL STATE [None]
  - HEADACHE [None]
